FAERS Safety Report 19441153 (Version 1)
Quarter: 2021Q2

REPORT INFORMATION
  Report Type: Spontaneous
  Country: FR (occurrence: FR)
  Receive Date: 20210621
  Receipt Date: 20210621
  Transmission Date: 20210717
  Serious: Yes (Hospitalization)
  Sender: FDA-Public Use
  Company Number: FR-TEVA-2021-FR-1923247

PATIENT
  Age: 63 Year
  Sex: Female
  Weight: 105 kg

DRUGS (3)
  1. CARDENSIEL 1,25 MG, COMPRIME PELLICULE [Concomitant]
     Active Substance: BISOPROLOL FUMARATE
     Indication: EXTRASYSTOLES
  2. NAPROXENE [Suspect]
     Active Substance: NAPROXEN
     Indication: BACK PAIN
     Route: 048
     Dates: start: 20210408, end: 20210415
  3. VAXZEVRIA [Suspect]
     Active Substance: AZD-1222
     Indication: COVID-19 IMMUNISATION
     Dosage: 1DF
     Route: 030
     Dates: start: 20210323, end: 20210323

REACTIONS (1)
  - Immune thrombocytopenia [Recovered/Resolved]

NARRATIVE: CASE EVENT DATE: 20210415
